FAERS Safety Report 10149921 (Version 1)
Quarter: 2014Q2

REPORT INFORMATION
  Report Type: Spontaneous
  Country: US (occurrence: US)
  Receive Date: 20140502
  Receipt Date: 20140502
  Transmission Date: 20141212
  Serious: Yes (Hospitalization)
  Sender: FDA-Public Use
  Company Number: PHHY2014US050620

PATIENT
  Age: 48 Year
  Sex: Male

DRUGS (13)
  1. GLYCERYL TRINITRATE [Suspect]
     Route: 061
  2. AZATHIOPRINE [Suspect]
     Dosage: 200 MG, DAILY
     Route: 048
  3. CYCLOPHOSPHAMIDE [Concomitant]
     Indication: RENAL FAILURE ACUTE
     Dosage: 25 MG, DAILY
     Route: 048
  4. CYCLOPHOSPHAMIDE [Concomitant]
     Dosage: 125 MG, DAILY
     Route: 048
  5. CYCLOPHOSPHAMIDE [Concomitant]
     Dosage: 1 G, UNK
     Route: 042
  6. CYCLOPHOSPHAMIDE [Concomitant]
     Dosage: 125 MG, DAY
     Route: 048
  7. CORTICOSTEROIDS [Concomitant]
     Indication: RENAL FAILURE ACUTE
     Route: 042
  8. ASPIRIN [Concomitant]
     Dosage: 325 MG, DAILY
     Route: 048
  9. HEPARIN [Concomitant]
     Route: 041
  10. NIFEDIPINE [Concomitant]
     Dosage: 10 MG, TID
     Route: 048
  11. NIFEDIPINE [Concomitant]
     Dosage: 20 MG, TID
     Route: 048
  12. PREDNISONE [Concomitant]
     Dosage: 90 MG, DAILY
     Route: 048
  13. SILDENAFIL [Concomitant]
     Dosage: 20 MG, TID
     Route: 048

REACTIONS (3)
  - Pain [Unknown]
  - Eschar [Unknown]
  - Drug ineffective [Unknown]
